FAERS Safety Report 6369899-6 (Version None)
Quarter: 2009Q3

REPORT INFORMATION
  Report Type: 
  Country: None (occurrence: None)
  Receive Date: 20090923
  Receipt Date: 20070522
  Transmission Date: 20100115
  Serious: Yes (Other)
  Sender: FDA-Public Use
  Company Number: US-ASTRAZENECA-2006UW10949

PATIENT
  Sex: Male
  Weight: 134.3 kg

DRUGS (10)
  1. SEROQUEL [Suspect]
     Dosage: 100-200 MG
     Route: 048
     Dates: start: 20000922
  2. ZYPREXA [Suspect]
  3. HALDOL [Concomitant]
  4. RISPERDAL [Concomitant]
  5. ZOLOFT [Concomitant]
  6. WELLBUTRIN [Concomitant]
  7. PROZAC [Concomitant]
  8. GEODON [Concomitant]
  9. DESYREL [Concomitant]
  10. ATIVAN [Concomitant]

REACTIONS (3)
  - DIABETES MELLITUS [None]
  - PANCREATITIS [None]
  - TARDIVE DYSKINESIA [None]
